FAERS Safety Report 10189546 (Version 2)
Quarter: 2014Q2

REPORT INFORMATION
  Report Type: Spontaneous
  Country: HR (occurrence: HR)
  Receive Date: 20140522
  Receipt Date: 20140522
  Transmission Date: 20141212
  Serious: Yes (Other)
  Sender: FDA-Public Use
  Company Number: HR-BAYER-2014-058372

PATIENT
  Sex: Male

DRUGS (1)
  1. CANESTEN 3 20MG/G VAGINALNA KREMA [Suspect]
     Indication: PENILE ERYTHEMA
     Dosage: UNK

REACTIONS (3)
  - Application site ulcer [None]
  - Application site swelling [None]
  - Application site hyperaesthesia [None]
